FAERS Safety Report 11278870 (Version 1)
Quarter: 2015Q3

REPORT INFORMATION
  Report Type: Report from Study
  Country: US (occurrence: None)
  Receive Date: 20150716
  Receipt Date: 20150716
  Transmission Date: 20151125
  Serious: Yes (Other)
  Sender: FDA-Public Use
  Company Number: US-2015CRT000391

PATIENT
  Age: 64 Year
  Sex: Female
  Weight: 55.3 kg

DRUGS (9)
  1. ACTONEL (RISEDRONATE SODIUM) [Concomitant]
  2. ATORVASTATIN [Concomitant]
     Active Substance: ATORVASTATIN
  3. MULTIVITAMIN (ASCORBIC ACID, CALCIUM PANTOTHENATE, ERGOCALCIFEROL, NICOTINAMIDE, PYRIDOXINE HYDROCHLORIDE, RETINOL, RIBOFLAVIN, THIAMINE HYDROCHLORIDE) [Concomitant]
  4. ALPRAZOLAM. [Concomitant]
     Active Substance: ALPRAZOLAM
  5. KORLYM [Suspect]
     Active Substance: MIFEPRISTONE
     Indication: CUSHING^S SYNDROME
     Route: 048
     Dates: start: 20141113
  6. VALIUM [Concomitant]
     Active Substance: DIAZEPAM
  7. SYNTHYROID (LEVOTHYROXINE SODIUM) [Concomitant]
  8. PROZAC [Concomitant]
     Active Substance: FLUOXETINE HYDROCHLORIDE
  9. BIOTIN [Concomitant]
     Active Substance: BIOTIN

REACTIONS (17)
  - Feeling abnormal [None]
  - Tinnitus [None]
  - Nausea [None]
  - Fatigue [None]
  - Decreased appetite [None]
  - Memory impairment [None]
  - Renin decreased [None]
  - Alopecia [None]
  - Oedema peripheral [None]
  - Thirst [None]
  - Arthralgia [None]
  - Thyroid disorder [None]
  - Weight decreased [None]
  - Hypertension [None]
  - Nasopharyngitis [None]
  - Osteoarthritis [None]
  - Vertigo [None]

NARRATIVE: CASE EVENT DATE: 2014
